FAERS Safety Report 8595530-5 (Version None)
Quarter: 2012Q3

REPORT INFORMATION
  Report Type: 
  Country: None (occurrence: None)
  Receive Date: 20120815
  Receipt Date: 20120713
  Transmission Date: 20120928
  Serious: Yes (Hospitalization, Other)
  Sender: FDA-Public Use
  Company Number: GB-009507513-2012SP036734

PATIENT

DRUGS (1)
  1. SYCREST [Suspect]
     Indication: MANIA
     Dosage: UNK UNK, UNKNOWN
     Route: 060

REACTIONS (3)
  - SEDATION [None]
  - PNEUMONIA ASPIRATION [None]
  - RESPIRATORY FAILURE [None]
